FAERS Safety Report 8292166-0 (Version None)
Quarter: 2012Q2

REPORT INFORMATION
  Report Type: 
  Country: None (occurrence: None)
  Receive Date: 20120417
  Receipt Date: 20120227
  Transmission Date: 20120825
  Serious: No
  Sender: FDA-Public Use
  Company Number: US-ASTRAZENECA-2012SE07485

PATIENT
  Age: 56 Year
  Sex: Female

DRUGS (6)
  1. PRILOSEC [Suspect]
     Route: 048
  2. PRILOSEC OTC [Suspect]
     Route: 048
  3. ZANTAC [Concomitant]
  4. NEXIUM [Suspect]
     Route: 048
  5. PREVACID [Concomitant]
  6. REGLAN [Concomitant]

REACTIONS (4)
  - THROAT IRRITATION [None]
  - HIATUS HERNIA [None]
  - DRUG INEFFECTIVE [None]
  - MALAISE [None]
